FAERS Safety Report 11663646 (Version 1)
Quarter: 2015Q4

REPORT INFORMATION
  Report Type: Spontaneous
  Country: US (occurrence: None)
  Receive Date: 20151026
  Receipt Date: 20151026
  Transmission Date: 20160304
  Serious: No
  Sender: FDA-Public Use
  Company Number: None

PATIENT
  Age: 45 Year
  Sex: Male
  Weight: 104.33 kg

DRUGS (1)
  1. CORALITE MUSCLE AND JOINT PAIN RELIEF [Suspect]
     Active Substance: CAPSAICIN
     Indication: MYALGIA
     Dates: start: 20151024, end: 20151024

REACTIONS (3)
  - Application site erythema [None]
  - Application site vesicles [None]
  - Application site pain [None]

NARRATIVE: CASE EVENT DATE: 20151024
